FAERS Safety Report 4672454-7 (Version None)
Quarter: 2005Q2

REPORT INFORMATION
  Report Type: 
  Country: None (occurrence: None)
  Receive Date: 20050524
  Receipt Date: 20050404
  Transmission Date: 20051028
  Serious: Yes (Life-Threatening, Hospitalization)
  Sender: FDA-Public Use
  Company Number: PHRM2005FR01237

PATIENT
  Age: 84 Year
  Sex: Female

DRUGS (7)
  1. STILNOX [Concomitant]
     Indication: INSOMNIA
     Dosage: 1 DF, QD
     Route: 048
     Dates: start: 19980101
  2. TAHOR [Concomitant]
     Indication: HYPERCHOLESTEROLAEMIA
     Dosage: 1 DF, QD
     Route: 048
     Dates: start: 20030101
  3. PROPRANOLOL HYDROCHLORIDE [Concomitant]
     Indication: MIGRAINE
     Dosage: 1 DF, BID
     Route: 048
     Dates: start: 19900101
  4. SEROPRAM [Suspect]
  5. MOCLAMINE [Suspect]
     Indication: DEPRESSION
     Dosage: 1 DF, BID
     Route: 048
     Dates: start: 20050301, end: 20050319
  6. TEMESTA [Concomitant]
     Indication: ANXIETY
     Dosage: 1 DF, BID
     Route: 048
     Dates: start: 19850101
  7. COTAREG [Suspect]
     Indication: HYPERTENSION
     Dosage: 1 DF, QD
     Route: 048
     Dates: start: 20050115, end: 20050319

REACTIONS (5)
  - CONFUSIONAL STATE [None]
  - DEPRESSION [None]
  - DRUG INTERACTION [None]
  - FEELING ABNORMAL [None]
  - HYPONATRAEMIA [None]
